FAERS Safety Report 6157153-7 (Version None)
Quarter: 2009Q2

REPORT INFORMATION
  Report Type: 
  Country: None (occurrence: None)
  Receive Date: 20090416
  Receipt Date: 20090403
  Transmission Date: 20091009
  Serious: Yes (Hospitalization, Other)
  Sender: FDA-Public Use
  Company Number: FR-ELI_LILLY_AND_COMPANY-FR200805001298

PATIENT
  Sex: Female
  Weight: 95 kg

DRUGS (11)
  1. BYETTA [Suspect]
     Indication: TYPE 2 DIABETES MELLITUS
     Dosage: 5 UG, 2/D
     Route: 058
     Dates: start: 20080429, end: 20080504
  2. GLUCOPHAGE [Concomitant]
     Indication: TYPE 2 DIABETES MELLITUS
     Dosage: 3 D/F, DAILY (1/D)
     Route: 048
  3. GLUCOPHAGE [Concomitant]
     Dosage: 850 UNK, 2/D
     Route: 065
  4. NOVOMIX 30 [Concomitant]
     Dosage: UNK, 2/D, STARTING DAY 5
     Route: 065
  5. NOVOMIX 30 [Concomitant]
     Dosage: 22 IU, 2/D
     Route: 065
  6. AMARYL [Concomitant]
     Indication: TYPE 2 DIABETES MELLITUS
     Dosage: 6 MG, UNKNOWN
     Route: 065
  7. AMARYL [Concomitant]
     Dosage: 4 MG, DAILY (1/D)
     Route: 048
  8. COAPROVEL [Concomitant]
     Indication: HYPERTENSION
     Dosage: 300 MG, DAILY (1/D)
     Route: 048
  9. FERROUS SULFATE TAB [Concomitant]
     Dosage: 2 D/F, DAILY (1/D)
     Route: 048
  10. CRESTOR [Concomitant]
     Indication: HYPERCHOLESTEROLAEMIA
     Dosage: 5 MG, DAILY (1/D)
     Route: 048
     Dates: start: 20080429
  11. MOTILIUM [Concomitant]
     Indication: NAUSEA
     Dosage: 3 D/F, DAILY (1/D)
     Route: 048
     Dates: start: 20080501

REACTIONS (20)
  - BLINDNESS TRANSIENT [None]
  - CARDIAC FAILURE [None]
  - DEHYDRATION [None]
  - DIABETIC KETOACIDOSIS [None]
  - DIARRHOEA [None]
  - DISTURBANCE IN ATTENTION [None]
  - DRUG TOXICITY [None]
  - FEEDING DISORDER [None]
  - GAIT DISTURBANCE [None]
  - GENERAL PHYSICAL HEALTH DETERIORATION [None]
  - HYPOVOLAEMIC SHOCK [None]
  - LACTIC ACIDOSIS [None]
  - METABOLIC ACIDOSIS [None]
  - NAUSEA [None]
  - RENAL FAILURE ACUTE [None]
  - RESPIRATORY FAILURE [None]
  - SLEEP DISORDER [None]
  - URINARY INCONTINENCE [None]
  - VERTIGO [None]
  - VOMITING [None]
